FAERS Safety Report 19407068 (Version 2)
Quarter: 2021Q2

REPORT INFORMATION
  Report Type: Spontaneous
  Country: US (occurrence: US)
  Receive Date: 20210611
  Receipt Date: 20210611
  Transmission Date: 20210717
  Serious: No
  Sender: FDA-Public Use
  Company Number: US-GALDERMA-US2020044536

PATIENT
  Age: 56 Year
  Sex: Female

DRUGS (4)
  1. MULTIVITAMINS [Concomitant]
     Active Substance: VITAMINS
     Indication: PRODUCT USED FOR UNKNOWN INDICATION
     Route: 065
  2. CALCIUM [Concomitant]
     Active Substance: CALCIUM
     Indication: PRODUCT USED FOR UNKNOWN INDICATION
     Route: 065
  3. METRONIDAZOLE CREAM (METRONIDAZOLE) 0.75% [Suspect]
     Active Substance: METRONIDAZOLE
     Indication: ACNE
     Dosage: 0.75%
     Route: 061
     Dates: start: 20200926, end: 20200928
  4. AQUAPHOR [Concomitant]
     Active Substance: PETROLATUM
     Indication: PRODUCT USED FOR UNKNOWN INDICATION
     Route: 065

REACTIONS (8)
  - Application site pustules [Recovering/Resolving]
  - Application site pruritus [Recovering/Resolving]
  - Application site rash [Recovering/Resolving]
  - Acne [Recovering/Resolving]
  - Application site erythema [Recovering/Resolving]
  - Application site pain [Recovering/Resolving]
  - Hypersensitivity [Recovering/Resolving]
  - Drug ineffective [Unknown]

NARRATIVE: CASE EVENT DATE: 20200927
